FAERS Safety Report 23049240 (Version 1)
Quarter: 2023Q4

REPORT INFORMATION
  Report Type: Spontaneous
  Country: AT (occurrence: None)
  Receive Date: 20231010
  Receipt Date: 20231010
  Transmission Date: 20240110
  Serious: Yes (Other)
  Sender: FDA-Public Use
  Company Number: 2023A222284

PATIENT
  Sex: Female

DRUGS (2)
  1. DAPAGLIFLOZIN [Suspect]
     Active Substance: DAPAGLIFLOZIN
     Route: 048
     Dates: start: 20230614, end: 20230620
  2. DAPAGLIFLOZIN [Suspect]
     Active Substance: DAPAGLIFLOZIN
     Route: 048
     Dates: start: 20230628, end: 20230710

REACTIONS (8)
  - Ketoacidosis [Unknown]
  - Renal failure [Unknown]
  - Nausea [Unknown]
  - Vertigo [Unknown]
  - Weight decreased [Unknown]
  - Thirst [Not Recovered/Not Resolved]
  - Renal impairment [Not Recovered/Not Resolved]
  - Mucosal dryness [Not Recovered/Not Resolved]
